FAERS Safety Report 8288619-1 (Version None)
Quarter: 2012Q2

REPORT INFORMATION
  Report Type: 
  Country: None (occurrence: None)
  Receive Date: 20120416
  Receipt Date: 20120321
  Transmission Date: 20120825
  Serious: Yes (Death, Other)
  Sender: FDA-Public Use
  Company Number: PHEH2012US007839

PATIENT
  Age: 22 Year
  Sex: Male

DRUGS (2)
  1. RITALIN [Suspect]
     Indication: ATTENTION DEFICIT/HYPERACTIVITY DISORDER
     Dosage: UNK UKN, UNK
     Route: 048
  2. RITALIN [Suspect]
     Dosage: 20 MG, (32 PILLS) A DAY
     Route: 048

REACTIONS (2)
  - INTENTIONAL OVERDOSE [None]
  - DRUG DEPENDENCE [None]
